FAERS Safety Report 14996304 (Version 2)
Quarter: 2018Q3

REPORT INFORMATION
  Report Type: Spontaneous
  Country: US (occurrence: US)
  Receive Date: 20180611
  Receipt Date: 20180801
  Transmission Date: 20181010
  Serious: Yes (Other)
  Sender: FDA-Public Use
  Company Number: US-JNJFOC-20180609915

PATIENT
  Age: 66 Year
  Sex: Female

DRUGS (18)
  1. BIOTIN [Concomitant]
     Active Substance: BIOTIN
  2. EPIPEN [Concomitant]
     Active Substance: EPINEPHRINE
  3. MILK OF MAGNESIA [Concomitant]
     Active Substance: MAGNESIUM HYDROXIDE
  4. RESTASIS [Concomitant]
     Active Substance: CYCLOSPORINE
  5. IMBRUVICA [Suspect]
     Active Substance: IBRUTINIB
     Indication: WALDENSTROM^S MACROGLOBULINAEMIA
     Dosage: 420 MG, QD
     Route: 048
     Dates: start: 20180209, end: 20180604
  6. LASIX [Concomitant]
     Active Substance: FUROSEMIDE
  7. ZOFRAN [Concomitant]
     Active Substance: ONDANSETRON HYDROCHLORIDE
  8. IMBRUVICA [Suspect]
     Active Substance: IBRUTINIB
     Indication: WALDENSTROM^S MACROGLOBULINAEMIA
     Route: 048
     Dates: start: 20180507
  9. GLUTAMINE [Concomitant]
     Active Substance: GLUTAMINE
  10. SYNTHROID [Concomitant]
     Active Substance: LEVOTHYROXINE SODIUM
  11. STOOL SOFTENER (DOCUSATE) [Concomitant]
     Active Substance: DOCUSATE
  12. IMBRUVICA [Suspect]
     Active Substance: IBRUTINIB
     Indication: WALDENSTROM^S MACROGLOBULINAEMIA
     Route: 048
     Dates: start: 20180605, end: 201807
  13. ALPHA LIPOIC ACID [Concomitant]
     Active Substance: .ALPHA.-LIPOIC ACID
  14. TIZANIDINE. [Concomitant]
     Active Substance: TIZANIDINE
  15. SUCRALFATE. [Concomitant]
     Active Substance: SUCRALFATE
  16. COLLAGEN [Concomitant]
     Active Substance: COLLAGEN
  17. CYMBALTA [Concomitant]
     Active Substance: DULOXETINE HYDROCHLORIDE
  18. KLOR?CON [Concomitant]
     Active Substance: POTASSIUM CHLORIDE

REACTIONS (6)
  - Abdominal pain upper [Unknown]
  - Visual impairment [Unknown]
  - Temporal arteritis [Unknown]
  - Dyspnoea [Unknown]
  - Back pain [Unknown]
  - Venous operation [Unknown]

NARRATIVE: CASE EVENT DATE: 20180506
